FAERS Safety Report 25714616 (Version 1)
Quarter: 2025Q3

REPORT INFORMATION
  Report Type: Spontaneous
  Country: US (occurrence: US)
  Receive Date: 20250822
  Receipt Date: 20250822
  Transmission Date: 20251020
  Serious: Yes (Other)
  Sender: TEVA
  Company Number: US-TEVA-VS-3362908

PATIENT
  Age: 48 Year
  Sex: Female

DRUGS (2)
  1. HYDROCHLOROTHIAZIDE [Suspect]
     Active Substance: HYDROCHLOROTHIAZIDE
     Indication: Product used for unknown indication
     Route: 065
     Dates: end: 20250424
  2. JYNARQUE [Suspect]
     Active Substance: TOLVAPTAN
     Indication: Polycystic liver disease
     Route: 065
     Dates: start: 20250424

REACTIONS (3)
  - Liver injury [Unknown]
  - Blood pressure increased [Unknown]
  - Oedema peripheral [Unknown]

NARRATIVE: CASE EVENT DATE: 20250101
